FAERS Safety Report 5062672-0 (Version None)
Quarter: 2006Q3

REPORT INFORMATION
  Report Type: 
  Country: None (occurrence: None)
  Receive Date: 20060724
  Receipt Date: 20060724
  Transmission Date: 20061208
  Serious: Yes (Other)
  Sender: FDA-Public Use
  Company Number: None

PATIENT
  Age: 9 Year
  Sex: Male

DRUGS (3)
  1. LINEZOLID [Suspect]
     Indication: MASTOIDITIS
     Dosage: 300 MG TWICE DAILY PO
     Route: 048
     Dates: start: 20051212, end: 20060531
  2. LINEZOLID [Suspect]
     Indication: MYCOBACTERIAL INFECTION
     Dosage: 300 MG TWICE DAILY PO
     Route: 048
     Dates: start: 20051212, end: 20060531
  3. .. [Concomitant]

REACTIONS (4)
  - NEUROPATHY PERIPHERAL [None]
  - OPTIC NEUROPATHY [None]
  - PARAESTHESIA [None]
  - VISUAL DISTURBANCE [None]
